FAERS Safety Report 10629101 (Version 1)
Quarter: 2014Q4

REPORT INFORMATION
  Report Type: Spontaneous
  Country: US (occurrence: None)
  Receive Date: 20141203
  Receipt Date: 20141203
  Transmission Date: 20150529
  Serious: Yes (Disabling)
  Sender: FDA-Public Use
  Company Number: None

PATIENT
  Age: 42 Year
  Sex: Female
  Weight: 98.88 kg

DRUGS (1)
  1. GABAPENTIN. [Suspect]
     Active Substance: GABAPENTIN
     Indication: NEURALGIA
     Dosage: ONE PILL IN THE MORNING, ONE AT NOON AND 3 AT NIGHT.
     Route: 048
     Dates: start: 20140328, end: 20140930

REACTIONS (4)
  - Drug ineffective [None]
  - Dizziness [None]
  - Product quality issue [None]
  - Weight increased [None]
